FAERS Safety Report 18726925 (Version 1)
Quarter: 2021Q1

REPORT INFORMATION
  Report Type: Spontaneous
  Country: CN (occurrence: CN)
  Receive Date: 20210111
  Receipt Date: 20210111
  Transmission Date: 20210419
  Serious: Yes (Other)
  Sender: FDA-Public Use
  Company Number: CN-BAYER-2021-020001

PATIENT
  Age: 64 Year
  Sex: Male
  Weight: 58 kg

DRUGS (1)
  1. NEXAVAR [Suspect]
     Active Substance: SORAFENIB
     Indication: HEPATOCELLULAR CARCINOMA
     Dosage: 0.4 G, BID
     Route: 048
     Dates: start: 20201214, end: 20201221

REACTIONS (3)
  - Joint swelling [Recovering/Resolving]
  - Arthralgia [Recovering/Resolving]
  - Rash [Recovering/Resolving]

NARRATIVE: CASE EVENT DATE: 20201220
